FAERS Safety Report 23346194 (Version 1)
Quarter: 2023Q4

REPORT INFORMATION
  Report Type: Spontaneous
  Country: US (occurrence: None)
  Receive Date: 20231227
  Receipt Date: 20231227
  Transmission Date: 20240109
  Serious: Yes (Hospitalization)
  Sender: FDA-Public Use
  Company Number: None

PATIENT
  Age: 64 Year
  Sex: Female

DRUGS (1)
  1. HUMIRA [Suspect]
     Active Substance: ADALIMUMAB
     Indication: Rheumatoid arthritis
     Dosage: 40MG EVERY14DAYS SUBCUTANEOUS?
     Route: 058
     Dates: start: 201904

REACTIONS (2)
  - Rash [None]
  - Cerebrovascular accident [None]

NARRATIVE: CASE EVENT DATE: 20231218
